FAERS Safety Report 14467645 (Version 1)
Quarter: 2018Q1

REPORT INFORMATION
  Report Type: Report from Study
  Country: US (occurrence: US)
  Receive Date: 20180131
  Receipt Date: 20180131
  Transmission Date: 20180509
  Serious: Yes (Other)
  Sender: FDA-Public Use
  Company Number: US-TESARO, INC.-US-2018TSO00475

PATIENT

DRUGS (1)
  1. ZEJULA [Suspect]
     Active Substance: NIRAPARIB
     Indication: OVARIAN CANCER
     Dosage: 2 CAPSULES TWO DAY THEN 1 CAPSULE ON THE THIRD DAY
     Route: 048
     Dates: start: 20171220

REACTIONS (4)
  - Carbohydrate antigen 125 increased [Unknown]
  - Positron emission tomogram abnormal [Unknown]
  - Intentional underdose [Recovered/Resolved]
  - Product use issue [Recovered/Resolved]
